FAERS Safety Report 15536792 (Version 1)
Quarter: 2018Q4

REPORT INFORMATION
  Report Type: Spontaneous
  Country: US (occurrence: US)
  Receive Date: 20181016
  Receipt Date: 20181016
  Transmission Date: 20190205
  Serious: No
  Sender: FDA-Public Use
  Company Number: None

PATIENT
  Age: 59 Year
  Sex: Male

DRUGS (1)
  1. MYCOPHENOLATE MOFETIL TABLET 500MG [Suspect]
     Active Substance: MYCOPHENOLATE MOFETIL
     Indication: LUNG TRANSPLANT
     Dates: start: 20180523

REACTIONS (2)
  - Off label use [None]
  - Lung transplant [None]

NARRATIVE: CASE EVENT DATE: 20181013
